FAERS Safety Report 5011086-8 (Version None)
Quarter: 2006Q2

REPORT INFORMATION
  Report Type: 
  Country: None (occurrence: None)
  Receive Date: 20060525
  Receipt Date: 20060214
  Transmission Date: 20061013
  Serious: Yes (Other)
  Sender: FDA-Public Use
  Company Number: NL-BRISTOL-MYERS SQUIBB COMPANY-13287230

PATIENT
  Age: 39 Year
  Sex: Male

DRUGS (2)
  1. REYATAZ [Suspect]
     Indication: HIV INFECTION
     Dates: start: 20051220, end: 20060120
  2. RITONAVIR [Concomitant]
     Indication: HIV INFECTION
     Dates: start: 20051220, end: 20060120

REACTIONS (1)
  - HEPATITIS C [None]
